FAERS Safety Report 8060573-7 (Version None)
Quarter: 2012Q1

REPORT INFORMATION
  Report Type: 
  Country: None (occurrence: None)
  Receive Date: 20120120
  Receipt Date: 20120117
  Transmission Date: 20120608
  Serious: Yes (Other)
  Sender: FDA-Public Use
  Company Number: PHEH2011US011699

PATIENT
  Sex: Female

DRUGS (1)
  1. RECLAST [Suspect]
     Indication: OSTEOPOROSIS
     Dosage: 5 MG(ANNUALY), UNK
     Route: 042
     Dates: start: 20111021

REACTIONS (9)
  - NAUSEA [None]
  - HEAD INJURY [None]
  - PYREXIA [None]
  - MYALGIA [None]
  - DIARRHOEA [None]
  - CONFUSIONAL STATE [None]
  - BONE PAIN [None]
  - SYNCOPE [None]
  - CHILLS [None]
